FAERS Safety Report 6774892-5 (Version None)
Quarter: 2010Q2

REPORT INFORMATION
  Report Type: 
  Country: None (occurrence: None)
  Receive Date: 20100617
  Receipt Date: 20100603
  Transmission Date: 20101027
  Serious: Yes (Other)
  Sender: FDA-Public Use
  Company Number: NO-BAYER-201027675GPV

PATIENT
  Age: 0 Hour
  Sex: Male

DRUGS (10)
  1. ACETYLSALICYLIC ACID [Suspect]
     Indication: MYOCARDIAL INFARCTION
  2. ACETYLSALICYLIC ACID [Suspect]
  3. CLOPIDOGREL [Suspect]
     Indication: CHEST PAIN
  4. CLOPIDOGREL [Suspect]
  5. HEPARIN [Suspect]
     Indication: PERCUTANEOUS CORONARY INTERVENTION
     Route: 042
  6. HEPARIN [Suspect]
  7. HEPARIN [Suspect]
     Route: 058
  8. ABCIXIMAB [Suspect]
     Indication: THROMBOSIS IN DEVICE
  9. GLYCERYL TRINITRATE [Concomitant]
     Indication: CHEST PAIN
  10. DIURETICS [Concomitant]
     Indication: DRUG USE FOR UNKNOWN INDICATION

REACTIONS (2)
  - HAEMORRHAGE [None]
  - THROMBOCYTOPENIA [None]
